FAERS Safety Report 6752468-3 (Version None)
Quarter: 2010Q2

REPORT INFORMATION
  Report Type: 
  Country: None (occurrence: None)
  Receive Date: 20100602
  Receipt Date: 20100528
  Transmission Date: 20101027
  Serious: Yes (Death)
  Sender: FDA-Public Use
  Company Number: FR-SANOFI-AVENTIS-2010SA030837

PATIENT
  Age: 81 Year
  Sex: Female

DRUGS (4)
  1. ELOXATIN [Suspect]
     Indication: COLON CANCER
     Route: 041
     Dates: start: 20090709, end: 20090805
  2. FLUOROURACIL [Suspect]
     Indication: COLON CANCER
     Route: 040
     Dates: start: 20090709, end: 20090807
  3. FLUOROURACIL [Suspect]
     Route: 042
     Dates: start: 20090709, end: 20090807
  4. LEVOFOLINATE DE CALCIUM WINTHROP [Concomitant]
     Indication: CHEMOTHERAPY MULTIPLE AGENTS SYSTEMIC
     Route: 042
     Dates: start: 20090709, end: 20090805

REACTIONS (1)
  - CARDIAC ARREST [None]
